FAERS Safety Report 4950587-5 (Version None)
Quarter: 2006Q1

REPORT INFORMATION
  Report Type: 
  Country: None (occurrence: None)
  Receive Date: 20060321
  Receipt Date: 20060321
  Transmission Date: 20060701
  Serious: Yes (Hospitalization)
  Sender: FDA-Public Use
  Company Number: None

PATIENT
  Age: 28 Year
  Sex: Female
  Weight: 56 kg

DRUGS (3)
  1. TEQUIN [Suspect]
     Indication: CYSTITIS
     Dosage: 400 MG STAT IVPB
     Route: 040
     Dates: start: 20060306
  2. REGULAR INSULIN [Suspect]
     Indication: DIABETIC KETOACIDOSIS
     Dosage: 7 UNITS/HR IVPB
     Route: 040
     Dates: start: 20060306
  3. HUMULIN 70/30 [Concomitant]

REACTIONS (1)
  - HYPOGLYCAEMIA [None]
